FAERS Safety Report 9397291 (Version 1)
Quarter: 2013Q3

REPORT INFORMATION
  Report Type: Spontaneous
  Country: BR (occurrence: BR)
  Receive Date: 20130712
  Receipt Date: 20130712
  Transmission Date: 20140515
  Serious: Yes (Hospitalization, Other)
  Sender: FDA-Public Use
  Company Number: BR-SANOFI-AVENTIS-2013SA068696

PATIENT
  Age: 69 Year
  Sex: Male

DRUGS (1)
  1. LANTUS [Suspect]
     Indication: DIABETES MELLITUS
     Dosage: 36 IU IN THE MORNING AND 8 IU AT NIGHT DAILY
     Route: 065
     Dates: start: 2012

REACTIONS (3)
  - Cardiac disorder [Unknown]
  - Angioplasty [Unknown]
  - Blood glucose increased [Unknown]
